FAERS Safety Report 4274624-9 (Version None)
Quarter: 2004Q1

REPORT INFORMATION
  Report Type: 
  Country: None (occurrence: None)
  Receive Date: 20040115
  Receipt Date: 20040108
  Transmission Date: 20041129
  Serious: Yes (Hospitalization)
  Sender: FDA-Public Use
  Company Number: 2004SE00078

PATIENT
  Age: 76 Year
  Sex: Male

DRUGS (5)
  1. MOPRAL [Suspect]
     Dosage: 20 MG QD PO
     Route: 048
     Dates: start: 20020801, end: 20030811
  2. TRIATEC [Suspect]
     Indication: CARDIAC DISORDER
     Dosage: 1.25 MG DAILY PO
     Route: 048
     Dates: start: 20030801, end: 20030811
  3. ALDACTONE [Suspect]
     Dosage: 75 MG DAILY PO
     Route: 048
     Dates: start: 20020801, end: 20030811
  4. PREVISCAN [Suspect]
     Dosage: 15 MG DAILY PO
     Route: 048
     Dates: start: 20020801, end: 20030811
  5. AMIODARONE [Suspect]
     Dosage: FIVE TIMES A WEEK, TABL, PO
     Route: 048
     Dates: start: 20020801, end: 20030811

REACTIONS (1)
  - RENAL FAILURE ACUTE [None]
